FAERS Safety Report 10277696 (Version 1)
Quarter: 2014Q3

REPORT INFORMATION
  Report Type: Report from Study
  Country: US (occurrence: US)
  Receive Date: 20140704
  Receipt Date: 20140704
  Transmission Date: 20150326
  Serious: Yes (Other)
  Sender: FDA-Public Use
  Company Number: US-ROCHE-1426930

PATIENT

DRUGS (6)
  1. IRINOTECAN [Suspect]
     Active Substance: IRINOTECAN
     Indication: MALIGNANT GLIOMA
  2. TEMOZOLOMIDE [Suspect]
     Active Substance: TEMOZOLOMIDE
     Indication: BRAIN STEM GLIOMA
     Dosage: CONFORMAL RADIOTHERAPY WITH  TEMOZOLOMIDE (75-90 MG/M2/DAY FOR 42 DAYS) ALONG WITH BEVACIZUMAB.
     Route: 065
  3. BEVACIZUMAB [Suspect]
     Active Substance: BEVACIZUMAB
     Indication: MALIGNANT GLIOMA
     Dosage: CONFORMAL RADIOTHERAPY WITH BEVACIZUMAB (10 MG/KG: DAYS 22, 36) ALONG WITH TEMOZOLOMIDE
     Route: 065
  4. IRINOTECAN [Suspect]
     Active Substance: IRINOTECAN
     Indication: BRAIN STEM GLIOMA
     Dosage: CONFORMAL RADIOTHERAPY WITH BEVACIZUMAB AND TEMOZOLOMIDE FOLLOWED BY BEVACIZUMAB WITH IRINOTECAN (12
     Route: 065
  5. TEMOZOLOMIDE [Suspect]
     Active Substance: TEMOZOLOMIDE
     Indication: MALIGNANT GLIOMA
     Dosage: CONFORMAL RADIOTHERAPY WITH BEVACIZUMAB AND TEMOZOLOMIDE FOLLOWED BY BEVACIZUMAB WITH IRINOTECAN AND
     Route: 065
  6. BEVACIZUMAB [Suspect]
     Active Substance: BEVACIZUMAB
     Indication: BRAIN STEM GLIOMA
     Dosage: CONFORMAL RADIOTHERAPY WITH BEVACIZUMAB AND TEMOZOLOMIDE FOLLOWED BY BEVACIZUMAB (10 MG/KG, DAYS 1,
     Route: 065

REACTIONS (8)
  - Thrombocytopenia [Unknown]
  - Thrombosis [Unknown]
  - Hypertension [Unknown]
  - Skin ulcer [Unknown]
  - Wound dehiscence [Unknown]
  - Lymphopenia [Unknown]
  - Alanine aminotransferase abnormal [Unknown]
  - Neutropenia [Unknown]
